FAERS Safety Report 4489762-5 (Version None)
Quarter: 2004Q4

REPORT INFORMATION
  Report Type: 
  Country: None (occurrence: None)
  Receive Date: 20041026
  Receipt Date: 20041013
  Transmission Date: 20050328
  Serious: Yes (Death, Life-Threatening)
  Sender: FDA-Public Use
  Company Number: K200401581

PATIENT
  Age: 78 Year
  Sex: Female
  Weight: 47.9 kg

DRUGS (5)
  1. SEPTRA [Suspect]
     Dosage: 1 U, TIW, ORAL
     Route: 048
     Dates: start: 20040120, end: 20040128
  2. ALLOPURINOL [Suspect]
     Dosage: ORAL
     Route: 048
     Dates: start: 20031205, end: 20040128
  3. VALTREX [Suspect]
     Dosage: ORAL
     Route: 048
     Dates: start: 20040120, end: 20040201
  4. LEUKERAN [Suspect]
     Dosage: 2 CAPSULES, QD, ORAL
     Route: 048
     Dates: start: 20031205, end: 20040111
  5. FLUDARA [Suspect]
     Dosage: 60 MG, QD, ORAL
     Route: 048
     Dates: start: 20040120, end: 20040125

REACTIONS (6)
  - ABDOMINAL PAIN [None]
  - ANTIBODY TEST POSITIVE [None]
  - COOMBS TEST POSITIVE [None]
  - HAEMOLYTIC ANAEMIA [None]
  - HYPERBILIRUBINAEMIA [None]
  - IMMUNE AGGLUTININS [None]
